FAERS Safety Report 15371507 (Version 1)
Quarter: 2018Q3

REPORT INFORMATION
  Report Type: Spontaneous
  Country: US (occurrence: US)
  Receive Date: 20180911
  Receipt Date: 20180911
  Transmission Date: 20181010
  Serious: No
  Sender: FDA-Public Use
  Company Number: US-BEH-2018094730

PATIENT
  Sex: Female

DRUGS (4)
  1. HIZENTRA [Suspect]
     Active Substance: HUMAN IMMUNOGLOBULIN G
     Indication: IMMUNODEFICIENCY COMMON VARIABLE
     Dosage: 11 G, QW
     Route: 058
     Dates: start: 20180615
  2. ELIQUIS [Concomitant]
     Active Substance: APIXABAN
  3. CLARITIN [Concomitant]
     Active Substance: LORATADINE
  4. ADVAIR HFA [Concomitant]
     Active Substance: FLUTICASONE PROPIONATE\SALMETEROL XINAFOATE

REACTIONS (5)
  - Weight increased [Unknown]
  - Sleep disorder [Unknown]
  - Arthritis [Unknown]
  - Fatigue [Unknown]
  - Back pain [Unknown]
